FAERS Safety Report 9586274 (Version 1)
Quarter: 2013Q4

REPORT INFORMATION
  Report Type: Spontaneous
  Country: US (occurrence: None)
  Receive Date: 20131002
  Receipt Date: 20131002
  Transmission Date: 20140711
  Serious: No
  Sender: FDA-Public Use
  Company Number: None

PATIENT
  Age: 72 Year
  Sex: Female
  Weight: 103.87 kg

DRUGS (7)
  1. FLEXERIL [Suspect]
     Indication: MUSCLE SPASMS
     Dosage: 1 PILL THREE TIMES DAILY TAKEN BY MOUTH?
     Route: 048
  2. AVAPRO [Concomitant]
  3. AVALIDE [Concomitant]
  4. ACIDOPHILUS [Concomitant]
  5. MAALOX [Concomitant]
  6. IBUPROFEN [Concomitant]
  7. RANITIDINE [Concomitant]

REACTIONS (2)
  - Vertigo [None]
  - Headache [None]
